FAERS Safety Report 6171400-7 (Version None)
Quarter: 2009Q2

REPORT INFORMATION
  Report Type: 
  Country: None (occurrence: None)
  Receive Date: 20090429
  Receipt Date: 20090420
  Transmission Date: 20091009
  Serious: Yes (Death, Life-Threatening, Hospitalization, Disabling)
  Sender: FDA-Public Use
  Company Number: JP-AMGEN-US340628

PATIENT
  Sex: Female
  Weight: 34 kg

DRUGS (19)
  1. ENBREL [Suspect]
     Indication: RHEUMATOID ARTHRITIS
     Route: 058
     Dates: start: 20081031, end: 20090220
  2. PREDONINE [Suspect]
     Indication: RHEUMATOID ARTHRITIS
     Route: 048
     Dates: start: 19980301, end: 20081009
  3. PREDONINE [Suspect]
     Route: 048
     Dates: start: 20081009, end: 20081031
  4. PREDONINE [Suspect]
     Route: 048
     Dates: start: 20081101, end: 20081120
  5. PREDONINE [Suspect]
     Route: 048
     Dates: start: 20081121, end: 20081205
  6. PREDONINE [Suspect]
     Route: 048
     Dates: start: 20081206, end: 20090116
  7. PREDONINE [Suspect]
     Route: 048
     Dates: start: 20090116, end: 20090212
  8. PREDONINE [Suspect]
     Route: 048
     Dates: start: 20090213, end: 20090223
  9. RHEUMATREX [Suspect]
     Indication: RHEUMATOID ARTHRITIS
     Route: 048
     Dates: start: 20081126, end: 20081208
  10. RHEUMATREX [Suspect]
     Route: 048
     Dates: start: 20081209, end: 20090223
  11. AZULFIDINE EN-TABS [Concomitant]
     Indication: RHEUMATOID ARTHRITIS
     Route: 048
     Dates: start: 20081010, end: 20090223
  12. AMLODIPINE [Concomitant]
     Indication: HYPERTENSION
     Route: 048
     Dates: start: 20081003, end: 20090223
  13. LASIX [Concomitant]
     Indication: HYPERTENSION
     Route: 048
     Dates: start: 20081003, end: 20090223
  14. FOSAMAX [Concomitant]
     Indication: OSTEOPOROSIS
     Route: 048
     Dates: start: 20081020, end: 20090223
  15. LIPITOR [Concomitant]
     Indication: HYPERLIPIDAEMIA
     Route: 048
     Dates: start: 20081128, end: 20090223
  16. GASMOTIN [Concomitant]
     Indication: GASTRITIS
     Route: 048
     Dates: start: 20081010, end: 20090223
  17. AMBROXOL HYDROCHLORIDE [Concomitant]
     Indication: BRONCHITIS CHRONIC
     Route: 048
     Dates: start: 20081010, end: 20090223
  18. FOLIAMIN [Concomitant]
     Indication: PROPHYLAXIS
     Dosage: UNSPECIFIED
     Route: 048
     Dates: start: 20081217, end: 20090218
  19. OMEPRAZOLE [Concomitant]
     Indication: GASTRIC ULCER
     Route: 048
     Dates: start: 20081017, end: 20090223

REACTIONS (7)
  - ANURIA [None]
  - BLOOD PRESSURE DECREASED [None]
  - BRADYCARDIA [None]
  - OLIGURIA [None]
  - PNEUMOCYSTIS JIROVECI PNEUMONIA [None]
  - RESPIRATORY FAILURE [None]
  - TACHYCARDIA [None]
